FAERS Safety Report 4277449-3 (Version None)
Quarter: 2004Q1

REPORT INFORMATION
  Report Type: 
  Country: None (occurrence: None)
  Receive Date: 20040122
  Receipt Date: 20020903
  Transmission Date: 20041129
  Serious: Yes (Hospitalization)
  Sender: FDA-Public Use
  Company Number: CA-ROCHE-320714

PATIENT
  Age: 44 Year
  Sex: Male
  Weight: 103 kg

DRUGS (17)
  1. DACLIZUMAB [Suspect]
     Route: 042
     Dates: start: 20020710, end: 20020710
  2. DACLIZUMAB [Suspect]
     Route: 042
     Dates: start: 20020724, end: 20020905
  3. MYCOPHENOLATE MOFETIL [Suspect]
     Route: 048
     Dates: start: 20020709, end: 20020920
  4. MYCOPHENOLATE MOFETIL [Suspect]
     Route: 048
     Dates: start: 20021025, end: 20021107
  5. MYCOPHENOLATE MOFETIL [Suspect]
     Route: 048
     Dates: start: 20030414
  6. CYCLOSPORINE [Concomitant]
     Dosage: INCREASED TO 500 MG ON 31 AUG 2002.
     Dates: start: 20020827
  7. PREDNISONE [Concomitant]
     Dosage: INCREASED TO 15 MG ON 01 SEP 2002.
     Dates: start: 20020801
  8. METOPROLOL [Concomitant]
     Dates: start: 20020826
  9. LIPITOR [Concomitant]
     Dates: start: 20020813
  10. GANCICLOVIR [Concomitant]
     Route: 048
     Dates: start: 20020717, end: 20020920
  11. NORVASC [Concomitant]
     Dates: start: 20020714
  12. PHOSPHATE NOVARTIS [Concomitant]
     Dates: start: 20020711
  13. NYSTATIN [Concomitant]
     Dates: start: 20020711
  14. BACTRIM [Concomitant]
     Dates: start: 20020711
  15. COLACE [Concomitant]
     Dates: start: 20020711
  16. ASPIRIN [Concomitant]
     Dates: start: 20020711
  17. LOSEC I.V. [Concomitant]
     Dates: start: 20020711

REACTIONS (5)
  - CHILLS [None]
  - CYTOMEGALOVIRUS VIRAEMIA [None]
  - GRAFT DYSFUNCTION [None]
  - MYALGIA [None]
  - RENAL IMPAIRMENT [None]
